FAERS Safety Report 9524412 (Version 1)
Quarter: 2013Q1

REPORT INFORMATION
  Report Type: Spontaneous
  Country: US (occurrence: None)
  Receive Date: 20130314
  Receipt Date: 20130314
  Transmission Date: 20140127
  Serious: Yes (Hospitalization)
  Sender: FDA-Public Use
  Company Number: THYM-1003126

PATIENT
  Age: 51 Year
  Sex: Male

DRUGS (2)
  1. THYMOGLOBULIN [Suspect]
     Indication: KIDNEY TRANSPLANT REJECTION
     Dosage: UNK, INTRAVENOUS
     Route: 042
  2. SOLU MEDROL (METHYLPREDNISOLONE SODIUM DUCCINATE) [Concomitant]

REACTIONS (1)
  - Serum sickness [None]
